FAERS Safety Report 6079202-7 (Version None)
Quarter: 2009Q1

REPORT INFORMATION
  Report Type: 
  Country: None (occurrence: None)
  Receive Date: 20090216
  Receipt Date: 20090210
  Transmission Date: 20090719
  Serious: Yes (Hospitalization)
  Sender: FDA-Public Use
  Company Number: B0558463A

PATIENT
  Age: 20 Year
  Sex: Female

DRUGS (6)
  1. COMBIVIR [Suspect]
     Dates: start: 20090123
  2. KALETRA [Suspect]
     Dates: start: 20090123
  3. PIPOTHIAZINE PALMITATE [Suspect]
  4. ZOPICLONE [Suspect]
  5. DULOXETINE [Suspect]
  6. FERROUS SULPHATE [Suspect]

REACTIONS (1)
  - NEUROLEPTIC MALIGNANT SYNDROME [None]
